FAERS Safety Report 5723442-0 (Version None)
Quarter: 2008Q2

REPORT INFORMATION
  Report Type: 
  Country: None (occurrence: None)
  Receive Date: 20080425
  Receipt Date: 20080103
  Transmission Date: 20081010
  Serious: Yes (Hospitalization)
  Sender: FDA-Public Use
  Company Number: PHEH2008US00475

PATIENT
  Age: 49 Year
  Sex: Male
  Weight: 106.6 kg

DRUGS (9)
  1. MYFORTIC [Suspect]
     Indication: DIARRHOEA
     Dosage: 180 MG, BID, ORAL
     Route: 048
     Dates: start: 20070909
  2. PEGINTERFERON ALFA-2B(PEGINTERFERON ALFA-2B) [Suspect]
     Indication: HEPATITIS C
     Dosage: 0.58 ML, QW, SUBCUTANEOUS
     Route: 058
     Dates: start: 20071031
  3. REBETOL [Suspect]
     Indication: HEPATITIS C
     Dosage: 600 MG, BID, ORAL
     Route: 048
     Dates: start: 20071104
  4. TACROLIMUS [Concomitant]
  5. PREDNISONE TAB [Concomitant]
  6. URSOLIC ACID (URSOLIC ACID) [Concomitant]
  7. GABAPENTIN [Concomitant]
  8. OXYCODONE HCL [Concomitant]
  9. TRAMADOL HCL [Concomitant]

REACTIONS (6)
  - DEHYDRATION [None]
  - DIARRHOEA [None]
  - DIZZINESS [None]
  - DYSPNOEA [None]
  - GASTROENTERITIS [None]
  - VOMITING [None]
